FAERS Safety Report 6238611-3 (Version None)
Quarter: 2009Q2

REPORT INFORMATION
  Report Type: 
  Country: None (occurrence: None)
  Receive Date: 20090622
  Receipt Date: 20090617
  Transmission Date: 20091009
  Serious: Yes (Other)
  Sender: FDA-Public Use
  Company Number: US-ASTRAZENECA-2009UW13476

PATIENT
  Age: 45 Year
  Sex: Female
  Weight: 93.4 kg

DRUGS (7)
  1. SEROQUEL [Suspect]
     Indication: DEPRESSION
     Route: 048
     Dates: start: 20050101, end: 20070101
  2. SEROQUEL [Suspect]
     Indication: ANXIETY
     Route: 048
     Dates: start: 20050101, end: 20070101
  3. RISPERDAL [Concomitant]
     Dates: start: 20040101
  4. ABILIFY [Concomitant]
     Dates: start: 20050101, end: 20070101
  5. CLOZARIL [Concomitant]
     Dates: start: 20080101
  6. VALIUM [Concomitant]
     Dates: start: 20080101, end: 20080101
  7. XANAX [Concomitant]
     Dates: start: 20060101

REACTIONS (6)
  - BACK DISORDER [None]
  - BLOOD CHOLESTEROL INCREASED [None]
  - GALLBLADDER DISORDER [None]
  - MYOCARDIAL INFARCTION [None]
  - OBESITY [None]
  - TYPE 2 DIABETES MELLITUS [None]
